FAERS Safety Report 9970376 (Version 1)
Quarter: 2014Q1

REPORT INFORMATION
  Report Type: Spontaneous
  Country: US (occurrence: None)
  Receive Date: 20140218
  Receipt Date: 20140218
  Transmission Date: 20141002
  Serious: Yes (Hospitalization)
  Sender: FDA-Public Use
  Company Number: OMPQ-PR-1306S-0795

PATIENT
  Sex: 0

DRUGS (2)
  1. OMNIPAQUE [Suspect]
     Indication: SPINAL PAIN
     Dosage: NR, SINGLE DOSE, INTRATHECAL
     Route: 037
     Dates: start: 20130604
  2. OMNIPAQUE [Suspect]
     Indication: DIAGNOSTIC PROCEDURE
     Dosage: NR, SINGLE DOSE, INTRATHECAL
     Route: 037
     Dates: start: 20130604

REACTIONS (1)
  - Meningitis bacterial [None]
